FAERS Safety Report 9641906 (Version 1)
Quarter: 2013Q4

REPORT INFORMATION
  Report Type: Spontaneous
  Country: TR (occurrence: None)
  Receive Date: 20131021
  Receipt Date: 20131021
  Transmission Date: 20140711
  Serious: Yes (Hospitalization, Other)
  Sender: FDA-Public Use
  Company Number: AMIT20130030

PATIENT
  Age: 4 Year
  Sex: Female

DRUGS (1)
  1. AMITRIPTYLINE [Suspect]
     Indication: ACCIDENTAL EXPOSURE TO PRODUCT
     Dosage: 20 TABLETS, AT ONCE

REACTIONS (7)
  - Encephalitis [None]
  - Accidental exposure to product by child [None]
  - Balance disorder [None]
  - Speech disorder [None]
  - Syncope [None]
  - Blood pressure decreased [None]
  - Toxicity to various agents [None]
